FAERS Safety Report 25844085 (Version 1)
Quarter: 2025Q3

REPORT INFORMATION
  Report Type: Spontaneous
  Country: GB (occurrence: GB)
  Receive Date: 20250925
  Receipt Date: 20250925
  Transmission Date: 20251021
  Serious: Yes (Other)
  Sender: MSN LABORATORIES PRIVATE LIMITED
  Company Number: GB-MHRA-TPP62341238C22275880YC1757511190593

PATIENT

DRUGS (17)
  1. ROSUVASTATIN [Suspect]
     Active Substance: ROSUVASTATIN
     Indication: Product used for unknown indication
     Dosage: 5MG TABLETS START WITH ONE TABLET A WEEK FOR 4 WEEKS, THEN
     Route: 065
     Dates: start: 20250804, end: 20250910
  2. AMOXICILLIN [Concomitant]
     Active Substance: AMOXICILLIN
     Indication: Ill-defined disorder
     Dosage: TAKE ONE 3 TIMES/DAY
     Route: 065
     Dates: start: 20250724, end: 20250729
  3. MOUNJARO [Concomitant]
     Active Substance: TIRZEPATIDE
     Indication: Ill-defined disorder
     Dosage: 5MG WEEKLY
     Route: 065
     Dates: start: 20250909
  4. CHLORAMPHENICOL [Concomitant]
     Active Substance: CHLORAMPHENICOL
     Indication: Ill-defined disorder
     Dosage: ONE DROP 4 TIMES/DAY
     Route: 065
     Dates: start: 20250801, end: 20250808
  5. CINNARIZINE [Concomitant]
     Active Substance: CINNARIZINE
     Indication: Ill-defined disorder
     Dosage: ONE TABLET UP TO THREE TIMES A DAY
     Route: 065
     Dates: start: 20250409
  6. DAPAGLIFLOZIN [Concomitant]
     Active Substance: DAPAGLIFLOZIN
     Indication: Ill-defined disorder
     Dosage: ONE TO BE TAKEN DAILY
     Route: 065
     Dates: start: 20250409, end: 20250907
  7. GLUCOPHAGE [Concomitant]
     Active Substance: METFORMIN HYDROCHLORIDE
     Indication: Ill-defined disorder
     Dosage: ONE TO BE TAKEN EACH DAY WITH FOOD
     Route: 065
     Dates: start: 20250409
  8. BUTYLSCOPOLAMINE BROMIDE [Concomitant]
     Active Substance: BUTYLSCOPOLAMINE BROMIDE
     Indication: Ill-defined disorder
     Dosage: ONE OR TWO CAN BE TAKEN UP TO FOUR TIMES A DAY ...
     Route: 065
     Dates: start: 20250409
  9. IBUPROFEN [Concomitant]
     Active Substance: IBUPROFEN
     Indication: Ill-defined disorder
     Dosage: APPLY UP TO THREE TIMES A DAY FOR SHOULD PAIN A...
     Route: 065
     Dates: start: 20250409
  10. IBUPROFEN [Concomitant]
     Active Substance: IBUPROFEN
  11. OMEPRAZOLE [Concomitant]
     Active Substance: OMEPRAZOLE
     Indication: Ill-defined disorder
     Dosage: TAKE ONE DAILY FOR NAUSEA AND STOMACH CRAMPS
     Route: 065
     Dates: start: 20250409
  12. OMEPRAZOLE [Concomitant]
     Active Substance: OMEPRAZOLE
     Indication: Nausea
  13. OMEPRAZOLE [Concomitant]
     Active Substance: OMEPRAZOLE
     Indication: Abdominal pain upper
  14. QUININE BISULFATE [Concomitant]
     Active Substance: QUININE BISULFATE
     Indication: Ill-defined disorder
     Dosage: ONE DAILY AT NIGHT
     Route: 065
     Dates: start: 20250409
  15. SIMVASTATIN [Concomitant]
     Active Substance: SIMVASTATIN
     Indication: Ill-defined disorder
     Dosage: TAKE ONE AT NIGHT
     Route: 065
     Dates: start: 20250409, end: 20250715
  16. LIPITOR [Concomitant]
     Active Substance: ATORVASTATIN CALCIUM
     Indication: Ill-defined disorder
     Dosage: TAKE ONE DAILY BEFORE BED
     Route: 065
     Dates: start: 20250715, end: 20250804
  17. DAPAGLIFLOZIN [Concomitant]
     Active Substance: DAPAGLIFLOZIN
     Indication: Ill-defined disorder
     Dosage: TAKE ONE DAILY - SAME AS FORXIGA - PLEASE SEEK ...
     Route: 065
     Dates: start: 20250907

REACTIONS (1)
  - Diarrhoea [Recovering/Resolving]
